FAERS Safety Report 4741613-7 (Version None)
Quarter: 2005Q3

REPORT INFORMATION
  Report Type: 
  Country: None (occurrence: None)
  Receive Date: 20050808
  Receipt Date: 20050727
  Transmission Date: 20060218
  Serious: Yes (Hospitalization)
  Sender: FDA-Public Use
  Company Number: EWC050745180

PATIENT
  Age: 35 Year
  Sex: Female

DRUGS (2)
  1. GEMCITABINE HYDROCHLORIDE-IV (GEMCITABINE) [Suspect]
     Indication: URETHRAL CANCER METASTATIC
     Dosage: 1740 MG WEEK
     Dates: start: 20050628
  2. CISPLATIN [Concomitant]

REACTIONS (6)
  - ABDOMINAL PAIN [None]
  - ARTERIAL INSUFFICIENCY [None]
  - GASTROINTESTINAL DISORDER [None]
  - HYPOMAGNESAEMIA [None]
  - ISCHAEMIA [None]
  - OVARIAN TORSION [None]
